FAERS Safety Report 20444506 (Version 1)
Quarter: 2022Q1

REPORT INFORMATION
  Report Type: Spontaneous
  Country: US (occurrence: US)
  Receive Date: 20220208
  Receipt Date: 20220208
  Transmission Date: 20220423
  Serious: Yes (Other)
  Sender: FDA-Public Use
  Company Number: US-GLENMARK PHARMACEUTICALS-2022GMK070051

PATIENT
  Age: 64 Year
  Sex: Male

DRUGS (1)
  1. HYDROCORTISONE BUTYRATE [Suspect]
     Active Substance: HYDROCORTISONE BUTYRATE
     Indication: Pneumonitis
     Dosage: UNK
     Route: 042

REACTIONS (2)
  - Pneumonitis [Unknown]
  - Condition aggravated [Unknown]
